FAERS Safety Report 6153650-9 (Version None)
Quarter: 2009Q2

REPORT INFORMATION
  Report Type: 
  Country: None (occurrence: None)
  Receive Date: 20090413
  Receipt Date: 20090409
  Transmission Date: 20091009
  Serious: Yes (Death)
  Sender: FDA-Public Use
  Company Number: KR-ABBOTT-09P-090-0564724-00

PATIENT
  Age: 26 Year
  Sex: Male

DRUGS (5)
  1. SEVOFLURANE [Suspect]
     Indication: INDUCTION OF ANAESTHESIA
     Dates: start: 20090117
  2. SEVOFLURANE [Suspect]
     Indication: PERITONITIS
  3. SEVOFLURANE [Suspect]
     Indication: ABDOMINAL OPERATION
  4. ROCURONIUM BROMIDE [Concomitant]
     Indication: MUSCLE RELAXANT THERAPY
  5. PROPOFOL [Concomitant]
     Indication: INDUCTION OF ANAESTHESIA

REACTIONS (1)
  - HYPERTHERMIA [None]
